FAERS Safety Report 14101548 (Version 1)
Quarter: 2017Q4

REPORT INFORMATION
  Report Type: Spontaneous
  Country: US (occurrence: US)
  Receive Date: 20171017
  Receipt Date: 20171017
  Transmission Date: 20180321
  Serious: Yes (Hospitalization)
  Sender: FDA-Public Use
  Company Number: None

PATIENT
  Age: 80 Year
  Sex: Female

DRUGS (1)
  1. PROLIA [Suspect]
     Active Substance: DENOSUMAB
     Indication: OSTEOPOROSIS
     Dosage: 60 MG Q6 MONTHS SUBCUTANEOUS
     Route: 058
     Dates: start: 20150909, end: 20170418

REACTIONS (3)
  - Alopecia [None]
  - Gastrointestinal fungal infection [None]
  - Oral fungal infection [None]

NARRATIVE: CASE EVENT DATE: 20170601
